FAERS Safety Report 7197034-3 (Version None)
Quarter: 2010Q4

REPORT INFORMATION
  Report Type: 
  Country: None (occurrence: None)
  Receive Date: 20101224
  Receipt Date: 20101213
  Transmission Date: 20110411
  Serious: Yes (Other)
  Sender: FDA-Public Use
  Company Number: PHHY2010CH84402

PATIENT
  Sex: Female

DRUGS (3)
  1. ACLASTA [Suspect]
     Indication: OSTEOPOROSIS
     Dosage: 5 MG
     Route: 042
     Dates: start: 20101129
  2. PARACETAMOL [Concomitant]
  3. CELEBREX [Concomitant]
     Dosage: UNK
     Dates: start: 20101212

REACTIONS (7)
  - ARTHRALGIA [None]
  - BLOOD ALBUMIN DECREASED [None]
  - CHILLS [None]
  - CONSTIPATION [None]
  - GAIT DISTURBANCE [None]
  - RED BLOOD CELL SEDIMENTATION RATE INCREASED [None]
  - TREMOR [None]
